FAERS Safety Report 7658465-8 (Version None)
Quarter: 2011Q3

REPORT INFORMATION
  Report Type: 
  Country: None (occurrence: None)
  Receive Date: 20110805
  Receipt Date: 20110726
  Transmission Date: 20111222
  Serious: Yes (Hospitalization)
  Sender: FDA-Public Use
  Company Number: CA-JNJFOC-20110800352

PATIENT
  Sex: Female
  Weight: 51 kg

DRUGS (1)
  1. REMICADE [Suspect]
     Indication: RHEUMATOID ARTHRITIS
     Route: 042

REACTIONS (4)
  - UPPER LIMB FRACTURE [None]
  - CONFUSIONAL STATE [None]
  - FALL [None]
  - ASTHENIA [None]
